FAERS Safety Report 5097718-7 (Version None)
Quarter: 2006Q3

REPORT INFORMATION
  Report Type: 
  Country: None (occurrence: None)
  Receive Date: 20060901
  Receipt Date: 20060815
  Transmission Date: 20061208
  Serious: Yes (Other)
  Sender: FDA-Public Use
  Company Number: US200608002955

PATIENT
  Sex: Male
  Weight: 102 kg

DRUGS (1)
  1. ZYPREXA [Suspect]
     Indication: DEPRESSION
     Dosage: 10  MG, DAILY (1/D); 20 MG, DAILY (1/D)
     Dates: start: 19990401, end: 20010301

REACTIONS (3)
  - DIABETES MELLITUS [None]
  - HEPATITIS VIRAL [None]
  - METABOLIC DISORDER [None]
